FAERS Safety Report 8472902-0 (Version None)
Quarter: 2012Q2

REPORT INFORMATION
  Report Type: 
  Country: None (occurrence: None)
  Receive Date: 20120627
  Receipt Date: 20120619
  Transmission Date: 20120825
  Serious: Yes (Hospitalization)
  Sender: FDA-Public Use
  Company Number: FR-B.I. PHARMACEUTICALS,INC./RIDGEFIELD-2012-FF-00787FF

PATIENT
  Age: 49 Year
  Sex: Female

DRUGS (6)
  1. NAPROSYN [Suspect]
     Indication: ANKYLOSING SPONDYLITIS
  2. MOBIC [Suspect]
     Indication: ANKYLOSING SPONDYLITIS
  3. SULFASALAZINE [Suspect]
     Indication: ANKYLOSING SPONDYLITIS
  4. PIROXICAM [Suspect]
     Indication: ANKYLOSING SPONDYLITIS
  5. CORTICOSTEROIDS [Suspect]
     Indication: ANKYLOSING SPONDYLITIS
  6. ENBREL [Suspect]
     Indication: ANKYLOSING SPONDYLITIS

REACTIONS (9)
  - INJECTION SITE ERYTHEMA [None]
  - LUNG INFECTION [None]
  - TOOTH DISORDER [None]
  - INJECTION SITE PRURITUS [None]
  - PERICARDIAL EFFUSION [None]
  - WEIGHT DECREASED [None]
  - ABDOMINAL PAIN [None]
  - DYSPNOEA [None]
  - FATIGUE [None]
